FAERS Safety Report 5063363-2 (Version None)
Quarter: 2006Q3

REPORT INFORMATION
  Report Type: 
  Country: None (occurrence: None)
  Receive Date: 20060703
  Receipt Date: 20051121
  Transmission Date: 20061208
  Serious: No
  Sender: FDA-Public Use
  Company Number: 2005S1011272

PATIENT
  Age: 29 Year
  Sex: Male
  Weight: 68.0396 kg

DRUGS (11)
  1. CLOZAPINE [Suspect]
     Indication: SCHIZOPHRENIA
     Dosage: 100 MG;BID;ORAL
     Route: 048
     Dates: start: 20051010
  2. BENZTROPINE MESYLATE [Concomitant]
  3. HALOPERIDOL [Concomitant]
  4. LORAZEPAM [Concomitant]
  5. VALPROATE SODIUM [Concomitant]
  6. TAMSULOSIN HYDROCHLORIDE [Concomitant]
  7. TOLTERODINE TARTRATE [Concomitant]
  8. DOCUSATE SODIUM [Concomitant]
  9. SENNA [Concomitant]
  10. BISACODYL [Concomitant]
  11. CLONAZEPAM [Concomitant]

REACTIONS (1)
  - GRANULOCYTOPENIA [None]
